FAERS Safety Report 4943344-7 (Version None)
Quarter: 2006Q1

REPORT INFORMATION
  Report Type: 
  Country: None (occurrence: None)
  Receive Date: 20060314
  Receipt Date: 20051125
  Transmission Date: 20060701
  Serious: Yes (Other)
  Sender: FDA-Public Use
  Company Number: GB-BRISTOL-MYERS SQUIBB COMPANY-13311998

PATIENT
  Age: 60 Year
  Sex: Male

DRUGS (1)
  1. TRAZODONE HCL [Suspect]
     Route: 048

REACTIONS (4)
  - ABASIA [None]
  - ASTHENIA [None]
  - DIZZINESS [None]
  - OVERDOSE [None]
